FAERS Safety Report 6382169-5 (Version None)
Quarter: 2009Q3

REPORT INFORMATION
  Report Type: 
  Country: None (occurrence: None)
  Receive Date: 20090928
  Receipt Date: 20090928
  Transmission Date: 20100115
  Serious: No
  Sender: FDA-Public Use
  Company Number: None

PATIENT

DRUGS (1)
  1. LANTUS [Suspect]

REACTIONS (3)
  - DRUG LABEL CONFUSION [None]
  - MEDICATION ERROR [None]
  - PRODUCT OUTER PACKAGING ISSUE [None]
